FAERS Safety Report 8299451-7 (Version None)
Quarter: 2012Q2

REPORT INFORMATION
  Report Type: 
  Country: None (occurrence: None)
  Receive Date: 20120419
  Receipt Date: 20120411
  Transmission Date: 20120825
  Serious: Yes (Life-Threatening, Other)
  Sender: FDA-Public Use
  Company Number: US-BAYER-2012-011253

PATIENT
  Age: 57 Year
  Sex: Male
  Weight: 77 kg

DRUGS (3)
  1. METFORMIN HCL [Concomitant]
  2. ALEVE (CAPLET) [Suspect]
     Indication: HEADACHE
     Dosage: 2 UNITS
     Route: 048
     Dates: start: 20120128, end: 20120128
  3. INSULIN [Concomitant]

REACTIONS (5)
  - BLOOD PRESSURE INCREASED [None]
  - BLOOD PRESSURE DECREASED [None]
  - PRURITUS [None]
  - HYPERSENSITIVITY [None]
  - RASH MACULAR [None]
